FAERS Safety Report 5039119-3 (Version None)
Quarter: 2006Q2

REPORT INFORMATION
  Report Type: 
  Country: None (occurrence: None)
  Receive Date: 20060629
  Receipt Date: 20060524
  Transmission Date: 20061013
  Serious: Yes (Death, Life-Threatening, Hospitalization)
  Sender: FDA-Public Use
  Company Number: BE-MERCK-0605BEL00025

PATIENT
  Age: 81 Year
  Sex: Female
  Weight: 88 kg

DRUGS (5)
  1. SINGULAIR [Suspect]
     Indication: ASTHMA
     Route: 048
     Dates: start: 20060505, end: 20060603
  2. ACENOCOUMAROL [Concomitant]
     Indication: PULMONARY EMBOLISM
     Route: 048
     Dates: start: 20060201, end: 20060528
  3. MOLSIDOMINE [Concomitant]
     Indication: HYPERTENSION
     Route: 048
     Dates: start: 20030101
  4. MOLSIDOMINE [Concomitant]
     Indication: ANGINA PECTORIS
     Route: 048
     Dates: start: 20030101
  5. BISOPROLOL FUMARATE AND HYDROCHLOROTHIAZIDE [Concomitant]
     Indication: HYPERTENSION
     Route: 048
     Dates: start: 20040101

REACTIONS (2)
  - LEUKOPENIA [None]
  - PANCYTOPENIA [None]
